FAERS Safety Report 9040383 (Version 1)
Quarter: 2013Q1

REPORT INFORMATION
  Report Type: Report from Study
  Country: US (occurrence: US)
  Receive Date: 20130129
  Receipt Date: 20130129
  Transmission Date: 20140127
  Serious: No
  Sender: FDA-Public Use
  Company Number: US-ABBOTT-12P-163-0891065-00

PATIENT
  Age: 46 Year
  Sex: Female

DRUGS (4)
  1. HUMIRA 40 MG/0.8 ML PEN [Suspect]
     Indication: CROHN^S DISEASE
     Dates: start: 201101
  2. HUMIRA 40 MG/0.8 ML PEN [Suspect]
     Indication: PSORIATIC ARTHROPATHY
  3. IMURAN [Concomitant]
     Indication: CROHN^S DISEASE
     Route: 048
     Dates: start: 201101
  4. IMURAN [Concomitant]
     Indication: PSORIATIC ARTHROPATHY

REACTIONS (2)
  - Incorrect storage of drug [Unknown]
  - Poor quality drug administered [Unknown]
